FAERS Safety Report 7896863-8 (Version None)
Quarter: 2011Q4

REPORT INFORMATION
  Report Type: 
  Country: None (occurrence: None)
  Receive Date: 20111104
  Receipt Date: 20111104
  Transmission Date: 20120403
  Serious: Yes (Other)
  Sender: FDA-Public Use
  Company Number: None

PATIENT
  Sex: Male
  Weight: 90.7194 kg

DRUGS (1)
  1. PRADAXA [Suspect]
     Indication: COAGULOPATHY
     Dosage: ONCE  AUG END TO SEPT. START

REACTIONS (3)
  - HYPOPHAGIA [None]
  - DYSPHAGIA [None]
  - PHARYNGEAL OEDEMA [None]
